FAERS Safety Report 9791496 (Version 1)
Quarter: 2014Q1

REPORT INFORMATION
  Report Type: Spontaneous
  Country: US (occurrence: US)
  Receive Date: 20140101
  Receipt Date: 20140101
  Transmission Date: 20141002
  Serious: No
  Sender: FDA-Public Use
  Company Number: US-BAYER-2013-159624

PATIENT
  Age: 60 Year
  Sex: Male
  Weight: 104 kg

DRUGS (1)
  1. ALEVE CAPLET [Suspect]
     Indication: HEADACHE
     Dosage: 1 DF, PRN
     Route: 048
     Dates: start: 20131227

REACTIONS (1)
  - Drug ineffective [None]
